FAERS Safety Report 25093169 (Version 1)
Quarter: 2025Q1

REPORT INFORMATION
  Report Type: Spontaneous
  Country: ES (occurrence: ES)
  Receive Date: 20250319
  Receipt Date: 20250319
  Transmission Date: 20250409
  Serious: Yes (Death, Congenital Anomaly)
  Sender: TEVA
  Company Number: None

PATIENT
  Sex: Female

DRUGS (3)
  1. FLUOXETINE [Suspect]
     Active Substance: FLUOXETINE HYDROCHLORIDE
     Indication: Mixed anxiety and depressive disorder
     Dosage: FLUOXETINE (2331A)
     Route: 048
     Dates: start: 202410, end: 20250122
  2. ACYCLOVIR [Suspect]
     Active Substance: ACYCLOVIR
     Indication: Oral herpes
     Dosage: ACICLOVIR (201A)
     Route: 048
     Dates: start: 20241015, end: 20241020
  3. FLUOXETINE HYDROCHLORIDE [Concomitant]
     Active Substance: FLUOXETINE HYDROCHLORIDE
     Indication: Mixed anxiety and depressive disorder
     Dosage: FLUOXETINE HYDROCHLORIDE (2331CH)
     Route: 048
     Dates: start: 20240213, end: 202410

REACTIONS (5)
  - Kidney malformation [Fatal]
  - Cleft palate [Fatal]
  - Congenital knee dislocation [Fatal]
  - Foetal exposure during pregnancy [Fatal]
  - Malformation venous [Fatal]

NARRATIVE: CASE EVENT DATE: 20250116
